FAERS Safety Report 10181722 (Version 1)
Quarter: 2014Q2

REPORT INFORMATION
  Report Type: Spontaneous
  Country: US (occurrence: US)
  Receive Date: 20140519
  Receipt Date: 20140519
  Transmission Date: 20141212
  Serious: No
  Sender: FDA-Public Use
  Company Number: US-BANPHARM-20131482

PATIENT
  Age: 68 Year
  Sex: Female
  Weight: 102.06 kg

DRUGS (4)
  1. IBUPROFEN CAPSULES 200 MG [Suspect]
     Indication: BACK PAIN
     Dosage: 2 DF, QD,
     Route: 048
     Dates: start: 20130528, end: 20130628
  2. LITHIUM [Concomitant]
  3. LISINOPRIL [Concomitant]
  4. CLONAZEPAM [Concomitant]

REACTIONS (2)
  - Blood pressure increased [Recovered/Resolved]
  - Headache [Recovered/Resolved]
